FAERS Safety Report 14335823 (Version 1)
Quarter: 2017Q4

REPORT INFORMATION
  Report Type: Spontaneous
  Country: TR (occurrence: TR)
  Receive Date: 20171229
  Receipt Date: 20171229
  Transmission Date: 20180321
  Serious: Yes (Hospitalization, Other)
  Sender: FDA-Public Use
  Company Number: TR-VISTAPHARM, INC.-VER201712-001623

PATIENT
  Age: 65 Year
  Sex: Male

DRUGS (2)
  1. PROPYPHENAZONE [Suspect]
     Active Substance: PROPYPHENAZONE
     Indication: NASOPHARYNGITIS
  2. HYDROCODONE AND ACETAMINOPHEN [Suspect]
     Active Substance: ACETAMINOPHEN\HYDROCODONE
     Indication: NASOPHARYNGITIS

REACTIONS (6)
  - Dyspnoea [Unknown]
  - Anaphylactic reaction [Unknown]
  - Angioedema [Unknown]
  - Kounis syndrome [Unknown]
  - Myocardial infarction [Unknown]
  - Urticaria [Unknown]
